FAERS Safety Report 5293779-0 (Version None)
Quarter: 2007Q2

REPORT INFORMATION
  Report Type: 
  Country: None (occurrence: None)
  Receive Date: 20070411
  Receipt Date: 20070330
  Transmission Date: 20071010
  Serious: Yes (Other)
  Sender: FDA-Public Use
  Company Number: GB-PFIZER INC-2007019308

PATIENT
  Age: 47 Year
  Sex: Female
  Weight: 72 kg

DRUGS (5)
  1. CHAMPIX [Suspect]
     Indication: SMOKING CESSATION THERAPY
     Route: 048
     Dates: start: 20070205, end: 20070311
  2. GABAPENTIN [Concomitant]
     Indication: PAIN
     Route: 048
  3. AMITRIPTYLINE HCL [Concomitant]
     Indication: PAIN
     Route: 048
  4. TRAMADOL HCL [Concomitant]
     Indication: PAIN
     Route: 048
  5. LANSOPRAZOLE [Concomitant]
     Indication: DYSPEPSIA
     Route: 048

REACTIONS (4)
  - OEDEMA PERIPHERAL [None]
  - PITTING OEDEMA [None]
  - PROTEIN URINE PRESENT [None]
  - RENAL DISORDER [None]
